FAERS Safety Report 6074581-9 (Version None)
Quarter: 2009Q1

REPORT INFORMATION
  Report Type: 
  Country: None (occurrence: None)
  Receive Date: 20090206
  Receipt Date: 20090130
  Transmission Date: 20090719
  Serious: Yes (Other)
  Sender: FDA-Public Use
  Company Number: JPI-P-005258

PATIENT
  Age: 60 Year
  Sex: Female
  Weight: 56.6996 kg

DRUGS (7)
  1. XYREM [Suspect]
     Indication: NARCOLEPSY
     Dosage: (1 IN 1 D), ORAL
     Route: 048
  2. LAMOTRIGINE [Concomitant]
  3. LEVOTHYROXINE SODIUM [Concomitant]
  4. FLUOXETINE HYDROCHLORIDE [Concomitant]
  5. MODAFINIL [Concomitant]
  6. OMEPRAZOLE [Concomitant]
  7. TERIPARATIDE [Concomitant]

REACTIONS (3)
  - BALANCE DISORDER [None]
  - FALL [None]
  - MULTIPLE SCLEROSIS [None]
